FAERS Safety Report 7859146-8 (Version None)
Quarter: 2011Q4

REPORT INFORMATION
  Report Type: 
  Country: None (occurrence: None)
  Receive Date: 20111027
  Receipt Date: 20111025
  Transmission Date: 20120403
  Serious: Yes (Death, Other)
  Sender: FDA-Public Use
  Company Number: PHHY2011NL88741

PATIENT
  Sex: Female
  Weight: 68 kg

DRUGS (4)
  1. FASLODEX [Concomitant]
     Dosage: 500 MG, ONCE EVERY 4 WEEKS
  2. ZOMETA [Suspect]
     Dosage: 4 MG/5 ML
     Dates: end: 20110907
  3. FRAXODI [Concomitant]
  4. ZOMETA [Suspect]
     Indication: METASTASES TO BONE
     Dosage: 4 MG/5 ML
     Dates: start: 20110714

REACTIONS (7)
  - GENERAL PHYSICAL HEALTH DETERIORATION [None]
  - NEOPLASM MALIGNANT [None]
  - URINARY BLADDER HAEMORRHAGE [None]
  - PAIN [None]
  - NEOPLASM PROGRESSION [None]
  - DEEP VEIN THROMBOSIS [None]
  - URINARY TRACT INFLAMMATION [None]
